FAERS Safety Report 26170765 (Version 2)
Quarter: 2025Q4

REPORT INFORMATION
  Report Type: Spontaneous
  Country: GB (occurrence: GB)
  Receive Date: 20251217
  Receipt Date: 20251222
  Transmission Date: 20260117
  Serious: Yes (Disabling, Other)
  Sender: PFIZER
  Company Number: GB-MLMSERVICE-20251206-PI740000-00218-3

PATIENT
  Age: 9 Decade
  Sex: Female

DRUGS (1)
  1. METHOTREXATE SODIUM [Suspect]
     Active Substance: METHOTREXATE SODIUM
     Indication: Rheumatoid arthritis
     Dosage: UNK
     Route: 048

REACTIONS (4)
  - Atypical fracture [Unknown]
  - Foot fracture [Unknown]
  - Tibia fracture [Unknown]
  - Bone disorder [Unknown]

NARRATIVE: CASE EVENT DATE: 20200901
